FAERS Safety Report 24894878 (Version 2)
Quarter: 2025Q2

REPORT INFORMATION
  Report Type: Spontaneous
  Country: US (occurrence: US)
  Receive Date: 20250128
  Receipt Date: 20250507
  Transmission Date: 20250717
  Serious: Yes (Other)
  Sender: RECORDATI
  Company Number: US-RECORDATI RARE DISEASES-2025000352

PATIENT
  Age: 16 Year
  Sex: Female

DRUGS (5)
  1. PANHEMATIN [Suspect]
     Active Substance: HEMIN
     Indication: Porphyria acute
     Dosage: 1 VIAL, QD
     Route: 042
     Dates: start: 20250113
  2. SYNTHROID [Concomitant]
     Active Substance: LEVOTHYROXINE SODIUM
     Indication: Hypothyroidism
     Dosage: 112 MICROGRAM, QD
  3. ALBUTEROL [Concomitant]
     Active Substance: ALBUTEROL
     Indication: Tracheostomy
  4. PULMICORT TURBUHALER [Concomitant]
     Active Substance: BUDESONIDE
     Indication: Tracheostomy
  5. MUCOMYST [Concomitant]
     Active Substance: ACETYLCYSTEINE
     Indication: Tracheostomy
     Dosage: 800 MG, Q12H

REACTIONS (3)
  - Bacteraemia [Recovering/Resolving]
  - Klebsiella infection [Recovering/Resolving]
  - Suspected transmission of an infectious agent via product [Recovered/Resolved]

NARRATIVE: CASE EVENT DATE: 20250101
